FAERS Safety Report 5736266-5 (Version None)
Quarter: 2008Q2

REPORT INFORMATION
  Report Type: 
  Country: None (occurrence: None)
  Receive Date: 20080509
  Receipt Date: 20080509
  Transmission Date: 20081010
  Serious: Yes (Other)
  Sender: FDA-Public Use
  Company Number: None

PATIENT
  Age: 83 Year
  Sex: Female
  Weight: 69.4003 kg

DRUGS (1)
  1. DIGITEK  .25MG BERTEK LABS [Suspect]

REACTIONS (1)
  - BLOOD PRESSURE FLUCTUATION [None]
